FAERS Safety Report 20970768 (Version 4)
Quarter: 2022Q2

REPORT INFORMATION
  Report Type: Spontaneous
  Country: US (occurrence: US)
  Receive Date: 20220616
  Receipt Date: 20220627
  Transmission Date: 20220721
  Serious: No
  Sender: FDA-Public Use
  Company Number: US-SANOFI-01131472

PATIENT

DRUGS (1)
  1. LOVENOX [Suspect]
     Active Substance: ENOXAPARIN SODIUM

REACTIONS (5)
  - Device malfunction [Unknown]
  - Occupational exposure to product [Unknown]
  - Puncture site haemorrhage [Unknown]
  - Injury associated with device [Unknown]
  - Device failure [Unknown]
